FAERS Safety Report 9154588 (Version 1)
Quarter: 2013Q1

REPORT INFORMATION
  Report Type: Spontaneous
  Country: CH (occurrence: CH)
  Receive Date: 20130311
  Receipt Date: 20130311
  Transmission Date: 20140127
  Serious: Yes (Life-Threatening, Other)
  Sender: FDA-Public Use
  Company Number: CH-PFIZER INC-2012031599

PATIENT
  Age: 55 Year
  Sex: Female

DRUGS (9)
  1. LYRICA [Suspect]
     Indication: GENERALISED ANXIETY DISORDER
     Dosage: 75 MG, 2X/DAY
     Route: 048
     Dates: start: 20111208, end: 20111210
  2. LYRICA [Suspect]
     Dosage: 150 MG, 2X/DAY
     Route: 048
     Dates: start: 20111211, end: 20111222
  3. CIPRALEX [Concomitant]
     Dosage: 10 MG, 1X/DAY (IN THE MORNING)
  4. TRIATEC COMP [Concomitant]
     Dosage: 12.5 MG/ 2.5 MG, 1X/DAY (IN THE MORNING)
  5. EUTHYROX [Concomitant]
     Dosage: 0.85 MG, 1X/DAY (IN THE MORNING)
  6. NOVALGIN [Concomitant]
     Dosage: 500 MG, 4X/DAY PLUS 2 WHEN NEEDED (ONCE IN THE MORNING, NOON, EVENING, NIGHT +2 IN ADDITION)
  7. PONSTAN [Concomitant]
     Dosage: 500 MG, UNK
  8. ACTIVELLE [Concomitant]
  9. DAFALGAN [Concomitant]
     Dosage: 500 MG, UNK

REACTIONS (2)
  - Pulmonary oedema [Recovered/Resolved]
  - Lip oedema [Recovered/Resolved]
